FAERS Safety Report 8552766-7 (Version None)
Quarter: 2012Q3

REPORT INFORMATION
  Report Type: 
  Country: None (occurrence: None)
  Receive Date: 20120731
  Receipt Date: 20120724
  Transmission Date: 20120928
  Serious: Yes (Other)
  Sender: FDA-Public Use
  Company Number: PHHY2012TR055671

PATIENT
  Age: 66 Year
  Sex: Male

DRUGS (1)
  1. FORADIL COMBI [Suspect]
     Indication: BRONCHIAL DISORDER

REACTIONS (2)
  - INTERVERTEBRAL DISC PROTRUSION [None]
  - DYSPHONIA [None]
